FAERS Safety Report 9449554 (Version 1)
Quarter: 2013Q3

REPORT INFORMATION
  Report Type: Spontaneous
  Country: US (occurrence: US)
  Receive Date: 20130809
  Receipt Date: 20130809
  Transmission Date: 20140515
  Serious: No
  Sender: FDA-Public Use
  Company Number: US-B.I. PHARMACEUTICALS,INC./RIDGEFIELD-2013-BI-23272BP

PATIENT
  Age: 64 Year
  Sex: Female
  Weight: 80 kg

DRUGS (7)
  1. SPIRIVA [Suspect]
     Indication: SARCOIDOSIS
     Dosage: 18 MCG
     Route: 055
     Dates: start: 2012
  2. METFORMIN [Concomitant]
     Indication: DIABETES MELLITUS
     Dosage: 1000 MG
     Route: 048
  3. LANTUS INSULIN [Concomitant]
     Indication: DIABETES MELLITUS
     Dosage: (SUBCUTANEOUS) STRENGTH: 15 UNITS; DAILY DOSE: 15 UNITS
     Route: 058
  4. PREDNISONE [Concomitant]
     Indication: SARCOIDOSIS
     Dosage: 5 MG
     Route: 048
  5. LISINOPRIL [Concomitant]
     Indication: HYPERTENSION
     Dosage: 20 MG
     Route: 048
  6. WARFARIN [Concomitant]
     Indication: ATRIAL FIBRILLATION
     Dosage: 7.5 MG
     Route: 048
  7. GLIMEPIRIDE [Concomitant]
     Indication: DIABETES MELLITUS
     Dosage: 8 MG
     Route: 048

REACTIONS (3)
  - Dyspnoea [Not Recovered/Not Resolved]
  - Off label use [Not Recovered/Not Resolved]
  - Product quality issue [Recovered/Resolved]
